FAERS Safety Report 14908662 (Version 5)
Quarter: 2019Q1

REPORT INFORMATION
  Report Type: Spontaneous
  Country: IT (occurrence: IT)
  Receive Date: 20180517
  Receipt Date: 20190121
  Transmission Date: 20190417
  Serious: Yes (Death)
  Sender: FDA-Public Use
  Company Number: IT-TEVA-2018-IT-892311

PATIENT
  Age: 57 Year
  Sex: Male
  Weight: 175 kg

DRUGS (3)
  1. EPIRUBICINA TEVA [Suspect]
     Active Substance: EPIRUBICIN
     Indication: RHABDOMYOSARCOMA
     Route: 042
     Dates: start: 20171019, end: 20180104
  2. HOLOXAN [Suspect]
     Active Substance: IFOSFAMIDE
     Indication: RHABDOMYOSARCOMA
     Route: 042
  3. LONQUEX 6 MG SOLUTION FOR INJECTION [Suspect]
     Active Substance: LIPEGFILGRASTIM
     Indication: NEUTROPENIA
     Route: 058
     Dates: start: 20180108

REACTIONS (5)
  - Bone marrow failure [Fatal]
  - Escherichia sepsis [Fatal]
  - Septic shock [Fatal]
  - Acute kidney injury [Fatal]
  - Acute respiratory failure [Fatal]

NARRATIVE: CASE EVENT DATE: 20180109
